FAERS Safety Report 5750451-8 (Version None)
Quarter: 2008Q2

REPORT INFORMATION
  Report Type: 
  Country: None (occurrence: None)
  Receive Date: 20080528
  Receipt Date: 20080115
  Transmission Date: 20081010
  Serious: No
  Sender: FDA-Public Use
  Company Number: US-KINGPHARMUSA00001-K200800061

PATIENT

DRUGS (18)
  1. AVINZA [Suspect]
     Indication: NEUROPATHY PERIPHERAL
     Dosage: 30 MG, UNK
     Route: 048
     Dates: start: 20060101
  2. KLOR-CON [Concomitant]
  3. PROZAC [Concomitant]
  4. TRICOR                             /00499301/ [Concomitant]
  5. ZETIA [Concomitant]
  6. ALBUTEROL [Concomitant]
  7. IPRATROPIUM BROMIDE [Concomitant]
  8. LANTUS [Concomitant]
     Indication: DIABETES MELLITUS
  9. METFORMIN HCL [Concomitant]
  10. ACTOS [Concomitant]
  11. LASIX [Concomitant]
  12. LUNESTA [Concomitant]
  13. WELCHOL [Concomitant]
  14. SOMA [Concomitant]
  15. TEKTURNA [Concomitant]
     Indication: BLOOD PRESSURE
  16. VICODIN [Concomitant]
     Indication: BREAKTHROUGH PAIN
  17. CLONIDINE [Concomitant]
  18. COZAAR [Concomitant]

REACTIONS (2)
  - DRUG DIVERSION [None]
  - DRUG INEFFECTIVE [None]
